FAERS Safety Report 9669982 (Version 1)
Quarter: 2013Q4

REPORT INFORMATION
  Report Type: Spontaneous
  Country: LB (occurrence: LB)
  Receive Date: 20131105
  Receipt Date: 20131105
  Transmission Date: 20140711
  Serious: Yes (Death)
  Sender: FDA-Public Use
  Company Number: LB-GLAXOSMITHKLINE-B0939003A

PATIENT
  Age: 60 Year
  Sex: Female

DRUGS (3)
  1. SERETIDE [Suspect]
     Indication: CHRONIC OBSTRUCTIVE PULMONARY DISEASE
     Route: 055
     Dates: start: 20131016, end: 20131019
  2. CEPHALOSPORINS (UNSPECIFIED) [Concomitant]
  3. OXYGEN THERAPY [Concomitant]

REACTIONS (5)
  - Respiratory distress [Fatal]
  - Periorbital oedema [Not Recovered/Not Resolved]
  - Localised oedema [Not Recovered/Not Resolved]
  - Pyrexia [Not Recovered/Not Resolved]
  - Overdose [Unknown]
